FAERS Safety Report 10039021 (Version 2)
Quarter: 2014Q2

REPORT INFORMATION
  Report Type: Spontaneous
  Country: JP (occurrence: JP)
  Receive Date: 20140326
  Receipt Date: 20140409
  Transmission Date: 20141212
  Serious: Yes (Other)
  Sender: FDA-Public Use
  Company Number: JP-BRISTOL-MYERS SQUIBB COMPANY-20550836

PATIENT
  Sex: 0

DRUGS (2)
  1. BARACLUDE TABS 0.5 MG [Suspect]
     Indication: CHRONIC HEPATITIS B
     Dosage: DOSE REDUCED TO 0.5 MG X 4/WEEK
     Route: 048
  2. ADEFOVIR [Suspect]

REACTIONS (1)
  - Fanconi syndrome [Not Recovered/Not Resolved]
